FAERS Safety Report 5141305-9 (Version None)
Quarter: 2006Q4

REPORT INFORMATION
  Report Type: 
  Country: None (occurrence: None)
  Receive Date: 20061101
  Receipt Date: 20060310
  Transmission Date: 20070319
  Serious: Yes (Hospitalization)
  Sender: FDA-Public Use
  Company Number: US-ROCHE-439863

PATIENT
  Age: 55 Year
  Sex: Female
  Weight: 54.5 kg

DRUGS (11)
  1. RIBAVIRIN [Suspect]
     Route: 048
     Dates: start: 20051018, end: 20060309
  2. PEG-INTERFERON ALFA 2A (RO 25-8310) [Suspect]
     Dosage: DOSAGE REPORTED AS PREFILLED SYRINGE.
     Route: 058
     Dates: start: 20051018, end: 20060309
  3. HYDROXYZINE [Concomitant]
     Dates: start: 20060124, end: 20060309
  4. SINGULAIR [Concomitant]
     Dosage: AT BEDTIME.
     Dates: start: 20060206
  5. CELEXA [Concomitant]
     Dates: start: 20051130
  6. COMBIVENT [Concomitant]
  7. FLONASE [Concomitant]
     Dosage: ONE SPRAY TO EACH NOSTRIL AT BEDTIME.
  8. ADVAIR HFA [Concomitant]
  9. MEDROL [Concomitant]
     Dosage: DOSE PACK AS PRESCRIBED.
  10. PROTONIX [Concomitant]
  11. ZITHROMAX [Concomitant]
     Dosage: TAKEN FOR 5 DAYS.
     Route: 048

REACTIONS (10)
  - ATELECTASIS [None]
  - BLOOD GLUCOSE INCREASED [None]
  - CHEST PAIN [None]
  - CHRONIC OBSTRUCTIVE PULMONARY DISEASE [None]
  - DYSPNOEA [None]
  - EMPHYSEMA [None]
  - HEPATITIS C [None]
  - PYREXIA [None]
  - RASH [None]
  - WHITE BLOOD CELL COUNT INCREASED [None]
